FAERS Safety Report 16906208 (Version 1)
Quarter: 2019Q4

REPORT INFORMATION
  Report Type: Spontaneous
  Country: US (occurrence: US)
  Receive Date: 20191011
  Receipt Date: 20191011
  Transmission Date: 20200122
  Serious: Yes (Other)
  Sender: FDA-Public Use
  Company Number: US-JNJFOC-20191007160

PATIENT

DRUGS (2)
  1. INVOKANA [Suspect]
     Active Substance: CANAGLIFLOZIN
     Indication: DIABETES INSIPIDUS
     Route: 048
  2. DESMOPRESSIN [Concomitant]
     Active Substance: DESMOPRESSIN

REACTIONS (3)
  - Product use in unapproved indication [Unknown]
  - Diabetes insipidus [Recovered/Resolved]
  - Off label use [Unknown]
